FAERS Safety Report 8257953-3 (Version None)
Quarter: 2012Q1

REPORT INFORMATION
  Report Type: 
  Country: None (occurrence: None)
  Receive Date: 20111211
  Receipt Date: 20111031
  Transmission Date: 20120608
  Serious: No
  Sender: FDA-Public Use
  Company Number: 201109008

PATIENT
  Age: 78 Year
  Sex: Female

DRUGS (9)
  1. CITALOPRAM HYDROBROMIDE [Concomitant]
  2. CALCIUM CARBONATE [Concomitant]
  3. REQUIP [Concomitant]
  4. LEVOXYL [Concomitant]
  5. PREVACID [Concomitant]
  6. ASPIRIN TAB [Concomitant]
  7. HYDROCORTONE [Concomitant]
  8. XIAFLEX (CLOSTRIDIAL COLLAGENASE) [Suspect]
     Indication: DUPUYTREN'S CONTRACTURE
     Dosage: 0.58 MG, 1 IN 1 D, INTRALESIONAL
     Route: 026
     Dates: start: 20110803, end: 20110803
  9. WELLBUTRIN XL [Concomitant]

REACTIONS (3)
  - PAIN [None]
  - SWELLING [None]
  - CONTUSION [None]
